FAERS Safety Report 22400345 (Version 2)
Quarter: 2023Q2

REPORT INFORMATION
  Report Type: Report from Study
  Country: DE (occurrence: DE)
  Receive Date: 20230602
  Receipt Date: 20230629
  Transmission Date: 20230721
  Serious: Yes (Other)
  Sender: FDA-Public Use
  Company Number: DE-PFM-2023-02446

PATIENT

DRUGS (6)
  1. NERATINIB [Suspect]
     Active Substance: NERATINIB
     Indication: Breast cancer
     Dosage: 120 MG/DAY
     Route: 048
     Dates: start: 20230417, end: 20230423
  2. NERATINIB [Suspect]
     Active Substance: NERATINIB
     Dosage: 160 MG/DAY
     Route: 048
     Dates: start: 20230424, end: 20230430
  3. NERATINIB [Suspect]
     Active Substance: NERATINIB
     Dosage: 240 MG/DAY
     Route: 048
     Dates: start: 20230501
  4. RAMIPRIL [Concomitant]
     Active Substance: RAMIPRIL
     Indication: Hypertension
     Dosage: 5 MG, DAILY
     Route: 048
  5. VITAMIN D [Concomitant]
     Active Substance: VITAMIN D NOS
     Indication: Prophylaxis
     Dosage: 20000 IU, WEEKLY
     Route: 048
  6. LOPERAMIDE [Concomitant]
     Active Substance: LOPERAMIDE
     Indication: Prophylaxis against diarrhoea
     Dosage: UNKNOWN DOSE (PRN)
     Route: 048
     Dates: start: 20230417, end: 20230427

REACTIONS (7)
  - Thrombocytopenia [Not Recovered/Not Resolved]
  - Leukopenia [Not Recovered/Not Resolved]
  - Constipation [Recovered/Resolved]
  - Abdominal pain [Not Recovered/Not Resolved]
  - Nausea [Not Recovered/Not Resolved]
  - Product use issue [Unknown]
  - Off label use [Unknown]

NARRATIVE: CASE EVENT DATE: 20230417
